FAERS Safety Report 10173940 (Version 3)
Quarter: 2014Q2

REPORT INFORMATION
  Report Type: Spontaneous
  Country: US (occurrence: US)
  Receive Date: 20140515
  Receipt Date: 20140610
  Transmission Date: 20141212
  Serious: Yes (Other)
  Sender: FDA-Public Use
  Company Number: US-BAYER-2014-070127

PATIENT
  Age: 42 Year
  Sex: Female

DRUGS (2)
  1. MIRENA [Suspect]
     Indication: CONTRACEPTION
     Dosage: 20 MCG/24HR, CONT
     Route: 015
     Dates: start: 20111110
  2. MIRENA [Suspect]
     Indication: MENORRHAGIA

REACTIONS (8)
  - Vaginal haemorrhage [None]
  - Pelvic pain [None]
  - Abdominal pain [None]
  - Bacterial infection [None]
  - Fungal infection [None]
  - Device dislocation [Not Recovered/Not Resolved]
  - Discomfort [Not Recovered/Not Resolved]
  - Off label use [None]
